FAERS Safety Report 4381109-8 (Version None)
Quarter: 2004Q2

REPORT INFORMATION
  Report Type: 
  Country: None (occurrence: None)
  Receive Date: 20040616
  Receipt Date: 20040602
  Transmission Date: 20050107
  Serious: Yes (Disabling)
  Sender: FDA-Public Use
  Company Number: 04P-163-0262534-00

PATIENT
  Age: 66 Year
  Sex: Male
  Weight: 65.7716 kg

DRUGS (7)
  1. HUMIRA [Suspect]
     Indication: RHEUMATOID ARTHRITIS
     Dosage: 40MG, 1 IN 15 D, SUBCUTANEOUS
     Route: 058
     Dates: start: 20031001
  2. PREDNISONE [Concomitant]
  3. VICODIN [Concomitant]
  4. CARVEDILOL [Concomitant]
  5. ASPIRIN [Concomitant]
  6. ALENDRONATE SODIUM [Concomitant]
  7. MULTIVITAMIN [Concomitant]

REACTIONS (1)
  - ERECTILE DYSFUNCTION [None]
